FAERS Safety Report 5387286-4 (Version None)
Quarter: 2007Q3

REPORT INFORMATION
  Report Type: 
  Country: None (occurrence: None)
  Receive Date: 20070716
  Receipt Date: 20070706
  Transmission Date: 20080115
  Serious: Yes (Hospitalization, Other)
  Sender: FDA-Public Use
  Company Number: PHBS2007CH11398

PATIENT
  Age: 79 Year
  Sex: Female

DRUGS (9)
  1. GLEEVEC [Suspect]
     Indication: BLAST CRISIS IN MYELOGENOUS LEUKAEMIA
     Dosage: 300 MG, BID
     Route: 065
     Dates: end: 20070228
  2. GLEEVEC [Suspect]
     Dosage: 600 MG, QD
     Route: 065
     Dates: start: 20070111
  3. SPRYCEL [Concomitant]
     Route: 065
  4. ALLOPURINOL [Concomitant]
     Dosage: 300 MG/D
     Route: 048
     Dates: start: 20070101, end: 20070305
  5. NOPIL [Concomitant]
     Dosage: 800+160 MG/3 TIMES PER WEEK
     Route: 048
     Dates: start: 20070115, end: 20070201
  6. DIFLUCAN [Concomitant]
     Dosage: 400 MG/WEEK
     Route: 048
     Dates: start: 20070115, end: 20070201
  7. VALTREX [Concomitant]
     Dosage: 500 MG, BID
     Route: 048
     Dates: start: 20070117, end: 20070201
  8. PANTOZOL [Concomitant]
     Dosage: 40 MG/D
     Route: 048
     Dates: start: 20070129
  9. MARCUMAR [Concomitant]
     Dosage: AS NECESSARY
     Route: 048
     Dates: start: 20070131

REACTIONS (11)
  - AORTIC VALVE DISEASE [None]
  - BRADYCARDIA [None]
  - CARDIAC FAILURE [None]
  - CARDIAC FAILURE CONGESTIVE [None]
  - DIARRHOEA [None]
  - EJECTION FRACTION DECREASED [None]
  - LYMPHOEDEMA [None]
  - NAUSEA [None]
  - OEDEMA PERIPHERAL [None]
  - TRICUSPID VALVE DISEASE [None]
  - VOMITING [None]
